FAERS Safety Report 9540225 (Version 5)
Quarter: 2013Q4

REPORT INFORMATION
  Report Type: Report from Study
  Country: US (occurrence: US)
  Receive Date: 20130920
  Receipt Date: 20131108
  Transmission Date: 20140711
  Serious: Yes (Hospitalization, Other)
  Sender: FDA-Public Use
  Company Number: US-ABBVIE-13P-163-1031637-00

PATIENT
  Age: 69 Year
  Sex: Female

DRUGS (15)
  1. HUMIRA [Suspect]
     Indication: CROHN^S DISEASE
     Dates: start: 201208
  2. MAGNESIUM [Concomitant]
     Indication: MINERAL SUPPLEMENTATION
  3. PRENATAL VITAMINS [Concomitant]
     Indication: PRODUCT USED FOR UNKNOWN INDICATION
  4. FAMOTIDINE [Concomitant]
     Indication: PRODUCT USED FOR UNKNOWN INDICATION
     Dosage: AT BEDTIME
  5. LOPERAMIDE [Concomitant]
     Indication: DIARRHOEA
  6. TUMS [Concomitant]
     Indication: PRODUCT USED FOR UNKNOWN INDICATION
     Dosage: 2-3 TUMS DAILY
  7. XANAX [Concomitant]
     Indication: ANXIOLYTIC THERAPY
  8. OXYCODONE [Concomitant]
     Indication: PAIN
  9. B12 [Concomitant]
     Indication: PRODUCT USED FOR UNKNOWN INDICATION
  10. NEO-VITAMIN [Concomitant]
     Indication: RENAL DISORDER
  11. MAGNESIUM [Concomitant]
     Indication: MINERAL SUPPLEMENTATION
  12. LOMOTIL [Concomitant]
     Indication: DIARRHOEA
  13. NAUSEA MEDICATION [Concomitant]
     Indication: NAUSEA
  14. PROTEIN DRINK [Concomitant]
     Indication: PRODUCT USED FOR UNKNOWN INDICATION
     Dosage: BEFORE DIALYSIS
  15. LOW BLOOD PRESSURE MEDICATION [Concomitant]
     Indication: HYPOTENSION

REACTIONS (28)
  - Renal failure [Not Recovered/Not Resolved]
  - Dehydration [Not Recovered/Not Resolved]
  - Central venous catheter removal [Unknown]
  - Blood sodium decreased [Not Recovered/Not Resolved]
  - Tooth abscess [Recovering/Resolving]
  - Cataract [Unknown]
  - Local swelling [Recovering/Resolving]
  - Arteriovenous fistula site complication [Recovering/Resolving]
  - Malaise [Not Recovered/Not Resolved]
  - Syncope [Not Recovered/Not Resolved]
  - Hypotension [Not Recovered/Not Resolved]
  - Haemorrhage subcutaneous [Not Recovered/Not Resolved]
  - Malaise [Not Recovered/Not Resolved]
  - Pruritus [Not Recovered/Not Resolved]
  - Nausea [Not Recovered/Not Resolved]
  - Fatigue [Not Recovered/Not Resolved]
  - Neck pain [Unknown]
  - Malaise [Not Recovered/Not Resolved]
  - Oropharyngeal pain [Not Recovered/Not Resolved]
  - Fall [Not Recovered/Not Resolved]
  - Tooth loss [Not Recovered/Not Resolved]
  - Candida infection [Not Recovered/Not Resolved]
  - Fall [Unknown]
  - Memory impairment [Unknown]
  - Cystitis [Unknown]
  - Abdominal pain upper [Recovered/Resolved]
  - Headache [Not Recovered/Not Resolved]
  - Nausea [Not Recovered/Not Resolved]
